FAERS Safety Report 4993684-0 (Version None)
Quarter: 2006Q2

REPORT INFORMATION
  Report Type: 
  Country: None (occurrence: None)
  Receive Date: 20060505
  Receipt Date: 20060502
  Transmission Date: 20061013
  Serious: Yes (Disabling, Other)
  Sender: FDA-Public Use
  Company Number: PT-MERCK-0604PRT00008

PATIENT
  Age: 20 Month
  Sex: Male

DRUGS (2)
  1. SINGULAIR [Suspect]
     Indication: BRONCHIOLITIS
     Route: 048
     Dates: start: 20051201, end: 20060401
  2. SINGULAIR [Suspect]
     Indication: WHEEZING
     Route: 048
     Dates: start: 20051201, end: 20060401

REACTIONS (3)
  - BLINDNESS UNILATERAL [None]
  - RETINAL DISORDER [None]
  - STRABISMUS [None]
